FAERS Safety Report 5340536-2 (Version None)
Quarter: 2007Q2

REPORT INFORMATION
  Report Type: 
  Country: None (occurrence: None)
  Receive Date: 20070405
  Receipt Date: 20061204
  Transmission Date: 20071010
  Serious: No
  Sender: FDA-Public Use
  Company Number: US200612000185

PATIENT
  Age: 38 Year
  Sex: Female

DRUGS (2)
  1. CYMBALTA [Suspect]
     Indication: DEPRESSION
     Dosage: SEE ATTACHED
     Dates: start: 20060914, end: 20061011
  2. CYMBALTA [Suspect]
     Indication: DEPRESSION
     Dosage: SEE ATTACHED
     Dates: start: 20061012, end: 20061127

REACTIONS (5)
  - CRYING [None]
  - DIZZINESS [None]
  - MEDICATION ERROR [None]
  - NAUSEA [None]
  - SUICIDAL IDEATION [None]
